FAERS Safety Report 8955750 (Version 1)
Quarter: 2012Q4

REPORT INFORMATION
  Report Type: 
  Country: US (occurrence: US)
  Receive Date: 20121210
  Receipt Date: 20121210
  Transmission Date: 20130627
  Serious: No
  Sender: FDA-Public Use
  Company Number: US-PFIZER INC-2012310153

PATIENT
  Sex: Female

DRUGS (2)
  1. ADVIL [Suspect]
     Dosage: UNK
  2. CELEBREX [Suspect]
     Dosage: UNK

REACTIONS (2)
  - Dyspepsia [Unknown]
  - Weight increased [Unknown]
